FAERS Safety Report 10564014 (Version 2)
Quarter: 2014Q4

REPORT INFORMATION
  Report Type: Spontaneous
  Country: JP (occurrence: JP)
  Receive Date: 20141104
  Receipt Date: 20141117
  Transmission Date: 20150529
  Serious: Yes (Hospitalization, Other)
  Sender: FDA-Public Use
  Company Number: JP-PFIZER INC-2014301654

PATIENT
  Age: 40 Year
  Sex: Female

DRUGS (1)
  1. ZITHROMAC SR [Suspect]
     Active Substance: AZITHROMYCIN DIHYDRATE
     Dosage: 1 DF, SINGLE
     Route: 048

REACTIONS (1)
  - Meningitis aseptic [Unknown]
